FAERS Safety Report 6239760-6 (Version None)
Quarter: 2009Q2

REPORT INFORMATION
  Report Type: 
  Country: None (occurrence: None)
  Receive Date: 20090619
  Receipt Date: 20090611
  Transmission Date: 20091009
  Serious: Yes (Hospitalization, Other)
  Sender: FDA-Public Use
  Company Number: CLOF-1000504

PATIENT
  Age: 25 Year
  Sex: Female
  Weight: 68.4 kg

DRUGS (7)
  1. CLOLAR [Suspect]
     Indication: ACUTE LYMPHOCYTIC LEUKAEMIA
     Dosage: 90 MG, QD, INTRAVENOUS
     Route: 042
     Dates: start: 20090407, end: 20090410
  2. DEXAMETHASONE TAB [Concomitant]
  3. DOLASETRON (DOLASETRON) [Concomitant]
  4. FUROSEMIDE [Concomitant]
  5. ACETAMINOPHEN [Concomitant]
  6. DIPHENHYDRAMINE HCL [Concomitant]
  7. ONDANSETRON HCL [Concomitant]

REACTIONS (6)
  - APPENDICITIS [None]
  - FLUSHING [None]
  - HYPERBILIRUBINAEMIA [None]
  - INFUSION RELATED REACTION [None]
  - PANCYTOPENIA [None]
  - TACHYCARDIA [None]
